FAERS Safety Report 6108104-2 (Version None)
Quarter: 2009Q1

REPORT INFORMATION
  Report Type: 
  Country: None (occurrence: None)
  Receive Date: 20090304
  Receipt Date: 20080320
  Transmission Date: 20090719
  Serious: Yes (Other)
  Sender: FDA-Public Use
  Company Number: US-000485

PATIENT
  Sex: Male

DRUGS (3)
  1. ISOVUE-128 [Suspect]
     Indication: ARTERIOGRAM CORONARY
     Dosage: 196ML QD INTRA-ARTERIAL
     Route: 013
     Dates: start: 20080318, end: 20080318
  2. ISOVUE-128 [Suspect]
     Indication: CARDIAC VENTRICULOGRAM
     Dosage: 196ML QD INTRA-ARTERIAL
     Route: 013
     Dates: start: 20080318, end: 20080318
  3. ISOVUE-128 [Suspect]
     Indication: VENTRICULAR TACHYCARDIA
     Dosage: 196ML QD INTRA-ARTERIAL
     Route: 013
     Dates: start: 20080318, end: 20080318

REACTIONS (1)
  - ARTERIOSPASM CORONARY [None]
